FAERS Safety Report 7350465-0 (Version None)
Quarter: 2011Q1

REPORT INFORMATION
  Report Type: 
  Country: None (occurrence: None)
  Receive Date: 20110314
  Receipt Date: 20090827
  Transmission Date: 20110831
  Serious: Yes (Other)
  Sender: FDA-Public Use
  Company Number: PHHY2009DE17751

PATIENT
  Sex: Female

DRUGS (1)
  1. EXTAVIA [Suspect]
     Indication: MULTIPLE SCLEROSIS
     Dosage: 250 UG (1 DF) , QOD
     Route: 058
     Dates: start: 20090304, end: 20100401

REACTIONS (6)
  - INTRA-ABDOMINAL HAEMATOMA [None]
  - DIARRHOEA [None]
  - FASCIITIS [None]
  - MULTIPLE SCLEROSIS RELAPSE [None]
  - HYPOAESTHESIA [None]
  - NAUSEA [None]
